FAERS Safety Report 7819374-4 (Version None)
Quarter: 2011Q4

REPORT INFORMATION
  Report Type: 
  Country: None (occurrence: None)
  Receive Date: 20111018
  Receipt Date: 20110118
  Transmission Date: 20120403
  Serious: No
  Sender: FDA-Public Use
  Company Number: US-ASTRAZENECA-2011SE03133

PATIENT
  Age: 21838 Day
  Sex: Female
  Weight: 71.7 kg

DRUGS (3)
  1. SYMBICORT [Suspect]
     Indication: ASTHMA
     Dosage: 160/4.5 MCG, BID
     Route: 055
     Dates: start: 20090101, end: 20110115
  2. PHENERGAN HCL [Concomitant]
     Indication: PROPHYLAXIS OF NAUSEA AND VOMITING
     Dosage: PRN
     Route: 048
     Dates: start: 20100101
  3. PAIN MEDICATION [Concomitant]
     Indication: BACK PAIN
     Dosage: PRN
     Route: 048
     Dates: start: 20100101

REACTIONS (4)
  - DRUG DOSE OMISSION [None]
  - COUGH [None]
  - INAPPROPRIATE SCHEDULE OF DRUG ADMINISTRATION [None]
  - DYSPNOEA [None]
